FAERS Safety Report 6074592-3 (Version None)
Quarter: 2009Q1

REPORT INFORMATION
  Report Type: 
  Country: None (occurrence: None)
  Receive Date: 20090209
  Receipt Date: 20090126
  Transmission Date: 20090719
  Serious: Yes (Hospitalization, Other)
  Sender: FDA-Public Use
  Company Number: 232741J08USA

PATIENT
  Age: 47 Year
  Sex: Female
  Weight: 59 kg

DRUGS (21)
  1. REBIF [Suspect]
     Indication: MULTIPLE SCLEROSIS
     Dosage: 44 MCG, 3 IN 1 WEEKS, SUBCUTANEOUS; 44 MCG, 3 IN 1 WEEKS, SUBCUTANEOUS
     Route: 058
     Dates: start: 20040101, end: 20080324
  2. REBIF [Suspect]
     Indication: MULTIPLE SCLEROSIS
     Dosage: 44 MCG, 3 IN 1 WEEKS, SUBCUTANEOUS; 44 MCG, 3 IN 1 WEEKS, SUBCUTANEOUS
     Route: 058
     Dates: start: 20080501
  3. CARAFATE [Concomitant]
  4. PRILOSEC [Concomitant]
  5. AMANTADINE HCL [Concomitant]
  6. BACLOFEN [Concomitant]
  7. BUSPAR [Concomitant]
  8. CLARITIN [Concomitant]
  9. CYMBALTA [Concomitant]
  10. DETROL LA [Concomitant]
  11. FERROUS SULFATE TAB [Concomitant]
  12. FIBER CHOICE (FIBRE, DIETARY) [Concomitant]
  13. LOPRESSOR (METOPROLOL TARTRATE) [Concomitant]
  14. LYRICA [Concomitant]
  15. FOSAMAX [Concomitant]
  16. MOBIC [Concomitant]
  17. TEGRETOL [Concomitant]
  18. TOPAMAX [Concomitant]
  19. ZANAFLEX [Concomitant]
  20. METHADONE HCL [Concomitant]
  21. PROVIGIL [Concomitant]

REACTIONS (14)
  - ABASIA [None]
  - ABDOMINAL WALL ABSCESS [None]
  - BALANCE DISORDER [None]
  - CELLULITIS [None]
  - DRUG HYPERSENSITIVITY [None]
  - FALL [None]
  - FAT NECROSIS [None]
  - INJECTION SITE DISCOLOURATION [None]
  - INJECTION SITE IRRITATION [None]
  - INJECTION SITE PAIN [None]
  - INJECTION SITE PRURITUS [None]
  - MONOPLEGIA [None]
  - MYOSITIS [None]
  - PERONEAL NERVE PALSY [None]
